FAERS Safety Report 10244088 (Version 1)
Quarter: 2014Q2

REPORT INFORMATION
  Report Type: Spontaneous
  Country: NL (occurrence: NL)
  Receive Date: 20140618
  Receipt Date: 20140618
  Transmission Date: 20141212
  Serious: Yes (Life-Threatening)
  Sender: FDA-Public Use
  Company Number: NL-PFIZER INC-2014167785

PATIENT
  Age: 80 Year
  Sex: Male
  Weight: 80 kg

DRUGS (5)
  1. TAZOCIN [Suspect]
     Indication: SEPSIS
     Dosage: 1 DF, TOTAL
     Dates: start: 20140613, end: 20140613
  2. METFORMIN [Concomitant]
     Dosage: 1000 MG, 2X/DAY
  3. TAMSULOSIN [Concomitant]
     Dosage: 0.4 MG, 1X/DAY
  4. BETAHISTINE [Concomitant]
     Dosage: 8 MG, 3X/DAY
  5. GALVUS [Concomitant]
     Dosage: 50 MG, 2X/DAY

REACTIONS (1)
  - Anaphylactic shock [Recovered/Resolved]
